FAERS Safety Report 8023104 (Version 4)
Quarter: 2015Q1

REPORT INFORMATION
  Report Type: Spontaneous
  Country: FR (occurrence: FR)
  Receive Date: 20110628
  Receipt Date: 20150323
  Transmission Date: 20150721
  Serious: Yes (Life-Threatening, Hospitalization, Other)
  Sender: FDA-Public Use
  Company Number: FR-ALLERGAN-1108433US

PATIENT
  Age: 9 Day
  Sex: Female
  Weight: 3.34 kg

DRUGS (1)
  1. ALPHAGAN 0,2% (2MG/ML), COLLYRE EN SOLUTION [Suspect]
     Active Substance: BRIMONIDINE TARTRATE
     Indication: ACCIDENTAL EXPOSURE TO PRODUCT
     Dosage: 3 GTT, SINGLE
     Route: 048
     Dates: start: 20110502, end: 20110502

REACTIONS (10)
  - Neonatal respiratory failure [Recovered/Resolved]
  - Body temperature decreased [Recovered/Resolved]
  - Coma [Recovered/Resolved]
  - Miosis [Recovered/Resolved]
  - Patent ductus arteriosus [Recovered/Resolved]
  - Hyperglycaemia [Recovered/Resolved]
  - Wrong drug administered [Unknown]
  - Apnoea [Recovered/Resolved]
  - Incorrect route of drug administration [Unknown]
  - Hypotonia [Recovered/Resolved]

NARRATIVE: CASE EVENT DATE: 20110502
